FAERS Safety Report 9563546 (Version 1)
Quarter: 2013Q1

REPORT INFORMATION
  Report Type: Spontaneous
  Country: US (occurrence: None)
  Receive Date: 20121218
  Receipt Date: 20121218
  Transmission Date: 20140127
  Serious: Yes (Other)
  Sender: FDA-Public Use
  Company Number: PHEH2012US002146

PATIENT
  Age: 81 Year
  Sex: Male
  Weight: 77.6 kg

DRUGS (7)
  1. ZOMETA (ZOLEDRONATE) SOLUTION FOR INJECTION [Suspect]
     Indication: PROSTATE CANCER METASTATIC
     Route: 042
  2. SIPULEUCEL-T [Suspect]
     Dosage: 250 ML, UNK, INFUSION
     Dates: start: 20111219
  3. CHOLECALCIFEROL [Concomitant]
  4. CALCIUM (CALCIUM) [Concomitant]
  5. LUPRON (LEUPRORELIN ACETATE) [Concomitant]
  6. ZOLEDRONIC ACID (ZOLEDRONIC ACID) [Concomitant]
  7. LEUPROLIDE (LEUPRORELIN ACETATE) [Concomitant]

REACTIONS (10)
  - Prostate cancer [None]
  - Alanine aminotransferase increased [None]
  - Aspartate aminotransferase increased [None]
  - Lymphocyte count decreased [None]
  - Platelet count increased [None]
  - Red blood cell count decreased [None]
  - Bone pain [None]
  - Pain [None]
  - Haemoglobin decreased [None]
  - Monocyte count increased [None]
